FAERS Safety Report 15785842 (Version 2)
Quarter: 2019Q1

REPORT INFORMATION
  Report Type: Report from Study
  Country: GT (occurrence: GT)
  Receive Date: 20190103
  Receipt Date: 20190114
  Transmission Date: 20190417
  Serious: No
  Sender: FDA-Public Use
  Company Number: GT-SA-2019SA000088

PATIENT
  Age: 81 Year
  Sex: Female

DRUGS (1)
  1. HYDROCHLOROTHIAZIDE/IRBESARTAN [Suspect]
     Active Substance: HYDROCHLOROTHIAZIDE\IRBESARTAN
     Indication: HYPERTENSION
     Dosage: 1 DF (300 MG OF IRBESARTAN + 25 MG OF HYDROCHLOROTHIAZIDE), QD
     Route: 048
     Dates: start: 200811, end: 201811

REACTIONS (5)
  - Flatulence [Not Recovered/Not Resolved]
  - Off label use [Unknown]
  - Venous thrombosis [Not Recovered/Not Resolved]
  - Arthralgia [Not Recovered/Not Resolved]
  - Oedema peripheral [Not Recovered/Not Resolved]

NARRATIVE: CASE EVENT DATE: 2016
